FAERS Safety Report 25645893 (Version 1)
Quarter: 2025Q3

REPORT INFORMATION
  Report Type: Spontaneous
  Country: US (occurrence: None)
  Receive Date: 20250804
  Receipt Date: 20250804
  Transmission Date: 20251020
  Serious: Yes (Death)
  Sender: FDA-CTU
  Company Number: None

PATIENT
  Age: 68 Year
  Sex: Female
  Weight: 37.2 kg

DRUGS (1)
  1. THYMOGLOBULIN [Suspect]
     Active Substance: LAPINE T-LYMPHOCYTE IMMUNE GLOBULIN
     Indication: Renal transplant
     Route: 041
     Dates: start: 20250722, end: 20250723

REACTIONS (2)
  - Haemoglobin decreased [None]
  - Cardio-respiratory arrest [None]

NARRATIVE: CASE EVENT DATE: 20250723
